FAERS Safety Report 7251135-X (Version None)
Quarter: 2011Q1

REPORT INFORMATION
  Report Type: 
  Country: None (occurrence: None)
  Receive Date: 20110119
  Receipt Date: 20110105
  Transmission Date: 20110831
  Serious: Yes (Hospitalization)
  Sender: FDA-Public Use
  Company Number: DSJ-2010-12652

PATIENT
  Age: 77 Year
  Sex: Male

DRUGS (8)
  1. LIVALO [Concomitant]
  2. ATELEC (CILNIDIPINE) (CILNIDIPINE) [Concomitant]
  3. ALLOPURINOL [Concomitant]
  4. LEVEMIR (INSULIN DETEMIR) (INJECTION) (INSULIN DETEMIR) [Concomitant]
  5. OLMESARTAN MEDOXOMIL [Suspect]
     Indication: ESSENTIAL HYPERTENSION
     Dosage: 10 MG (10 MG, 1 IN 1 D), PER ORAL
     Route: 048
     Dates: start: 20100313
  6. BLOPRESS (CANDESARTAN CILEXETIL) (CANDESARTAN CILEXETIL) [Concomitant]
  7. NOVOLIN R (INSULIN HUMAN) (INJECTION) (INSULIN HUMAN) [Concomitant]
  8. BASEN (VOGLIBOSE) (TABLET) (VOGLIBOSE) [Concomitant]

REACTIONS (2)
  - PNEUMONIA ASPIRATION [None]
  - CEREBRAL INFARCTION [None]
